FAERS Safety Report 7475894-6 (Version None)
Quarter: 2011Q2

REPORT INFORMATION
  Report Type: 
  Country: None (occurrence: None)
  Receive Date: 20110504
  Receipt Date: 20110420
  Transmission Date: 20111010
  Serious: Yes (Other)
  Sender: FDA-Public Use
  Company Number: 029641

PATIENT
  Age: 71 Year
  Sex: Male

DRUGS (11)
  1. ASPIRIN [Concomitant]
  2. MIDAZOLAM HCL [Concomitant]
  3. KEPPRA [Suspect]
     Indication: STATUS EPILEPTICUS
     Dosage: (INTRAVENOUS)
     Route: 042
  4. VALPROIC ACID [Concomitant]
  5. LORAZEPAM [Concomitant]
  6. TOPIRAMATE [Concomitant]
  7. PROPOFOL [Concomitant]
  8. PHENYTOIN [Concomitant]
  9. VIMPAT [Suspect]
     Indication: STATUS EPILEPTICUS
     Dosage: (50 MG, 50MGX2)
  10. PIRACETAM [Concomitant]
  11. PHENOBARBITAL TAB [Concomitant]

REACTIONS (13)
  - FATIGUE [None]
  - HYPOKINESIA [None]
  - DISORIENTATION [None]
  - DISTURBANCE IN ATTENTION [None]
  - ATAXIA [None]
  - DEMENTIA [None]
  - OFF LABEL USE [None]
  - DELUSIONAL PERCEPTION [None]
  - PSYCHOMOTOR RETARDATION [None]
  - BRAIN SCAN ABNORMAL [None]
  - CREUTZFELDT-JAKOB DISEASE [None]
  - VERBIGERATION [None]
  - AMNESTIC DISORDER [None]
